FAERS Safety Report 9165221 (Version 1)
Quarter: 2013Q1

REPORT INFORMATION
  Report Type: Spontaneous
  Country: JP (occurrence: JP)
  Receive Date: 20130315
  Receipt Date: 20130315
  Transmission Date: 20140127
  Serious: Yes (Other)
  Sender: FDA-Public Use
  Company Number: JP-ASTELLAS-2013JP003803

PATIENT
  Age: 65 Year
  Sex: Male

DRUGS (5)
  1. PROGRAF [Suspect]
     Indication: PROPHYLAXIS AGAINST GRAFT VERSUS HOST DISEASE
     Dosage: UNK
     Route: 065
  2. METHOTREXATE [Concomitant]
     Indication: PROPHYLAXIS AGAINST GRAFT VERSUS HOST DISEASE
     Route: 065
  3. AZACITIDINE [Concomitant]
     Indication: MYELODYSPLASTIC SYNDROME
     Dosage: UNK
     Route: 065
     Dates: start: 201109
  4. FLUDARABINE [Concomitant]
     Indication: BONE MARROW CONDITIONING REGIMEN
     Route: 065
  5. BUSULFAN [Concomitant]
     Indication: BONE MARROW CONDITIONING REGIMEN
     Route: 065

REACTIONS (2)
  - Drug ineffective [Unknown]
  - Graft versus host disease [Recovering/Resolving]
